FAERS Safety Report 24629381 (Version 1)
Quarter: 2024Q4

REPORT INFORMATION
  Report Type: Spontaneous
  Country: US (occurrence: US)
  Receive Date: 20241118
  Receipt Date: 20241118
  Transmission Date: 20250114
  Serious: Yes (Other)
  Sender: SUNOVION
  Company Number: US-SMPA-2024SPA004825

PATIENT

DRUGS (1)
  1. LATUDA [Suspect]
     Active Substance: LURASIDONE HYDROCHLORIDE
     Indication: Bipolar I disorder
     Dosage: UNK
     Route: 048
     Dates: start: 202310

REACTIONS (5)
  - Loss of consciousness [Unknown]
  - Sudden onset of sleep [Unknown]
  - Muscular weakness [Unknown]
  - Dissociation [Unknown]
  - Fatigue [Unknown]
